FAERS Safety Report 8176573 (Version 5)
Quarter: 2013Q1

REPORT INFORMATION
  Report Type: Spontaneous
  Country: US (occurrence: US)
  Receive Date: 20111012
  Receipt Date: 20130125
  Transmission Date: 20140127
  Serious: Yes (Hospitalization, Other)
  Sender: FDA-Public Use
  Company Number: US-ELI_LILLY_AND_COMPANY-US201110000521

PATIENT
  Sex: Female
  Weight: 63.49 kg

DRUGS (8)
  1. HUMATROPE [Suspect]
     Indication: GROWTH HORMONE DEFICIENCY
     Dosage: 0.20 MG, UNKNOWN
  2. HUMATROPE [Suspect]
     Dosage: 0.30 MG, UNKNOWN
  3. HUMATROPE [Suspect]
     Dosage: 0.70 MG, QD
     Route: 058
     Dates: start: 201004
  4. HUMATROPE [Suspect]
     Dosage: 0.70 MG, QD
     Route: 058
  5. HUMATROPE [Suspect]
     Dosage: 0.70 MG, WEEKLY (1/W)
  6. HYDROCORTISONE [Concomitant]
  7. THYROXIN [Concomitant]
  8. ESTROGEN NOS [Concomitant]

REACTIONS (11)
  - Cardiac infection [Recovered/Resolved]
  - Gastroenteritis [Recovered/Resolved]
  - Dehydration [Recovered/Resolved]
  - Adrenal insufficiency [Recovered/Resolved]
  - Dehydration [Unknown]
  - Anaemia [Unknown]
  - Joint dislocation [Unknown]
  - Hypoaesthesia [Unknown]
  - Incorrect dose administered [Unknown]
  - Musculoskeletal pain [Unknown]
  - Visual impairment [Unknown]
